FAERS Safety Report 26043791 (Version 2)
Quarter: 2025Q4

REPORT INFORMATION
  Report Type: Spontaneous
  Country: EU (occurrence: EU)
  Receive Date: 20251114
  Receipt Date: 20251212
  Transmission Date: 20260117
  Serious: Yes (Hospitalization)
  Sender: TEVA
  Company Number: None

PATIENT
  Age: 72 Year
  Sex: Male
  Weight: 65 kg

DRUGS (6)
  1. PACLITAXEL [Suspect]
     Active Substance: PACLITAXEL
     Indication: Adenocarcinoma pancreas
     Dosage: TIME INTERVAL: CYCLICAL
     Route: 042
     Dates: start: 202407, end: 20250320
  2. PACLITAXEL [Suspect]
     Active Substance: PACLITAXEL
     Indication: Adenocarcinoma pancreas
     Dosage: TIME INTERVAL: CYCLICAL: C1J1
     Route: 042
     Dates: start: 20250804, end: 20250804
  3. PACLITAXEL [Suspect]
     Active Substance: PACLITAXEL
     Indication: Adenocarcinoma pancreas
     Dosage: TIME INTERVAL: CYCLICAL: C2J1
     Route: 042
     Dates: start: 20250904, end: 20250904
  4. GEMZAR [Suspect]
     Active Substance: GEMCITABINE HYDROCHLORIDE
     Indication: Adenocarcinoma pancreas
     Dosage: TIME INTERVAL: CYCLICAL: C1J1
     Route: 042
     Dates: start: 20250804, end: 20250804
  5. GEMZAR [Suspect]
     Active Substance: GEMCITABINE HYDROCHLORIDE
     Indication: Adenocarcinoma pancreas
     Dosage: TIME INTERVAL: CYCLICAL: PARENTERAL
     Route: 065
     Dates: start: 202407, end: 20250320
  6. GEMZAR [Suspect]
     Active Substance: GEMCITABINE HYDROCHLORIDE
     Indication: Adenocarcinoma pancreas
     Dosage: TIME INTERVAL: CYCLICAL: C2J1
     Route: 042
     Dates: start: 20250904, end: 20250904

REACTIONS (2)
  - Venoocclusive liver disease [Not Recovered/Not Resolved]
  - Liver injury [Recovering/Resolving]

NARRATIVE: CASE EVENT DATE: 20250806
